FAERS Safety Report 19926969 (Version 4)
Quarter: 2022Q2

REPORT INFORMATION
  Report Type: Spontaneous
  Country: US (occurrence: US)
  Receive Date: 20211007
  Receipt Date: 20220516
  Transmission Date: 20220721
  Serious: No
  Sender: FDA-Public Use
  Company Number: US-AIMMUNE THERAPEUTICS, INC.-2021AIMT00594

PATIENT

DRUGS (5)
  1. PALFORZIA [Suspect]
     Active Substance: PEANUT
     Indication: Food allergy
     Dosage: 3 MG, 1X/DAY
     Route: 048
     Dates: start: 20210716, end: 20210801
  2. PALFORZIA [Suspect]
     Active Substance: PEANUT
     Dosage: 2 MG, 1X/DAY
     Route: 048
     Dates: start: 20210802, end: 20210802
  3. PALFORZIA [Suspect]
     Active Substance: PEANUT
     Dosage: 1 MG, 2X/DAY
     Route: 048
     Dates: start: 20210803, end: 20210809
  4. PALFORZIA [Suspect]
     Active Substance: PEANUT
     Dosage: 2 MG, 2X/DAY
     Route: 048
     Dates: start: 20210810, end: 20210813
  5. PALFORZIA [Suspect]
     Active Substance: PEANUT
     Dosage: 1 MG, 2X/DAY
     Route: 048
     Dates: start: 20210814, end: 20210823

REACTIONS (4)
  - Gastrointestinal pain [Unknown]
  - Inappropriate schedule of product administration [Recovered/Resolved]
  - Abdominal discomfort [Unknown]
  - Abdominal pain upper [Unknown]

NARRATIVE: CASE EVENT DATE: 20210701
